FAERS Safety Report 5606120-8 (Version None)
Quarter: 2008Q1

REPORT INFORMATION
  Report Type: 
  Country: None (occurrence: None)
  Receive Date: 20080123
  Receipt Date: 20080123
  Transmission Date: 20080703
  Serious: Yes (Other)
  Sender: FDA-Public Use
  Company Number: None

PATIENT
  Sex: Male

DRUGS (1)
  1. KEPPRA [Suspect]

REACTIONS (5)
  - DELIRIUM [None]
  - DELUSION [None]
  - HALLUCINATION [None]
  - HEAD INJURY [None]
  - PHYSICAL ASSAULT [None]
